FAERS Safety Report 9865487 (Version 1)
Quarter: 2014Q1

REPORT INFORMATION
  Report Type: Spontaneous
  Country: US (occurrence: US)
  Receive Date: 20140203
  Receipt Date: 20140203
  Transmission Date: 20141002
  Serious: No
  Sender: FDA-Public Use
  Company Number: US-ALLERGAN-1309618US

PATIENT
  Age: 73 Year
  Sex: Female

DRUGS (6)
  1. RESTASIS [Suspect]
     Indication: BLEPHARITIS
     Dosage: 2 GTT, BID
     Route: 047
  2. METOPROLOL [Concomitant]
     Indication: HYPERTENSION
     Dosage: 25 MG, QD
     Route: 048
  3. LOVASTATIN [Concomitant]
     Indication: BLOOD CHOLESTEROL INCREASED
     Dosage: 20 MG, QD
     Route: 048
  4. VICODIN [Concomitant]
     Indication: ARTHRITIS
     Dosage: UNK UNK, QD
     Route: 048
  5. TYLENOL ARTHRITIS [Concomitant]
     Indication: ARTHRITIS
     Dosage: 650 MG, QD
     Route: 048
  6. SYSTANE [Concomitant]
     Indication: DRY EYE
     Dosage: UNK UNK, QD
     Route: 047

REACTIONS (7)
  - Off label use [Unknown]
  - Erythema of eyelid [Not Recovered/Not Resolved]
  - Erythema of eyelid [Not Recovered/Not Resolved]
  - Eyelid oedema [Not Recovered/Not Resolved]
  - Eyelid oedema [Not Recovered/Not Resolved]
  - Eye discharge [Not Recovered/Not Resolved]
  - Foreign body sensation in eyes [Not Recovered/Not Resolved]
